FAERS Safety Report 4981645-7 (Version None)
Quarter: 2006Q2

REPORT INFORMATION
  Report Type: 
  Country: None (occurrence: None)
  Receive Date: 20060425
  Receipt Date: 20060125
  Transmission Date: 20061013
  Serious: Yes (Death, Other)
  Sender: FDA-Public Use
  Company Number: PHBS2006JP01464

PATIENT
  Age: 123 Day
  Sex: Male

DRUGS (4)
  1. SANDOSTATIN [Suspect]
     Indication: CHYLOTHORAX
     Dosage: 0.3 UG/KG/HR
  2. SANDOSTATIN [Suspect]
     Dosage: 18 UG/KG/HR
  3. SANDOSTATIN [Suspect]
     Dosage: 12 UG/KG/HR
  4. MEDIUM-CHAIN TRIGLYCERIDES [Concomitant]

REACTIONS (7)
  - ABDOMINAL DISTENSION [None]
  - ANURIA [None]
  - CARDIAC ARREST [None]
  - HYPERGLYCAEMIA [None]
  - HYPOGLYCAEMIA [None]
  - OLIGURIA [None]
  - PNEUMOTHORAX [None]
